FAERS Safety Report 4757848-3 (Version None)
Quarter: 2005Q3

REPORT INFORMATION
  Report Type: 
  Country: None (occurrence: None)
  Receive Date: 20050831
  Receipt Date: 20020214
  Transmission Date: 20060218
  Serious: Yes (Hospitalization)
  Sender: FDA-Public Use
  Company Number: US-AMGEN-02030537

PATIENT
  Age: 23 Year
  Sex: Female

DRUGS (3)
  1. ENBREL [Suspect]
     Indication: DRUG USE FOR UNKNOWN INDICATION
     Route: 058
     Dates: start: 20020125, end: 20020203
  2. ALBUTEROL [Concomitant]
  3. FERROUS SULFATE [Concomitant]
     Dates: start: 20020130

REACTIONS (3)
  - HEADACHE [None]
  - HEMIPLEGIA TRANSIENT [None]
  - NEUTROPENIA [None]
